FAERS Safety Report 4662548-4 (Version None)
Quarter: 2005Q2

REPORT INFORMATION
  Report Type: 
  Country: None (occurrence: None)
  Receive Date: 20050512
  Receipt Date: 20050429
  Transmission Date: 20051028
  Serious: Yes (Life-Threatening, Hospitalization)
  Sender: FDA-Public Use
  Company Number: 1515-093

PATIENT
  Age: 65 Year

DRUGS (5)
  1. VENOFER [Suspect]
     Indication: NEPHROGENIC ANAEMIA
     Dosage: 100 MG IV
     Route: 042
     Dates: start: 20050322, end: 20050408
  2. CARVEDILOL [Concomitant]
  3. VITAMIN B COMPLEX CAP [Concomitant]
  4. VIT C TAB [Concomitant]
  5. FOLIC ACID [Concomitant]

REACTIONS (1)
  - HEPATIC FAILURE [None]
